FAERS Safety Report 16352932 (Version 2)
Quarter: 2019Q3

REPORT INFORMATION
  Report Type: Spontaneous
  Country: US (occurrence: US)
  Receive Date: 20190524
  Receipt Date: 20190709
  Transmission Date: 20191004
  Serious: No
  Sender: FDA-Public Use
  Company Number: US-PFIZER INC-2019221804

PATIENT
  Age: 65 Year
  Sex: Male

DRUGS (1)
  1. NEURONTIN [Suspect]
     Active Substance: GABAPENTIN
     Dosage: UNK

REACTIONS (2)
  - Drug hypersensitivity [Unknown]
  - Pruritus [Unknown]

NARRATIVE: CASE EVENT DATE: 20161209
